FAERS Safety Report 7894499-6 (Version None)
Quarter: 2011Q4

REPORT INFORMATION
  Report Type: 
  Country: None (occurrence: None)
  Receive Date: 20111106
  Receipt Date: 20110816
  Transmission Date: 20120403
  Serious: No
  Sender: FDA-Public Use
  Company Number: US-AMGEN-USASP2011042151

PATIENT
  Age: 74 Year
  Sex: Female

DRUGS (1)
  1. ENBREL [Suspect]
     Indication: RHEUMATOID ARTHRITIS
     Dosage: 50 MG, QWK
     Dates: start: 20110802

REACTIONS (6)
  - OEDEMA PERIPHERAL [None]
  - GAIT DISTURBANCE [None]
  - RASH [None]
  - NEUROPATHY PERIPHERAL [None]
  - INJECTION SITE ERYTHEMA [None]
  - DYSPNOEA [None]
